FAERS Safety Report 22354851 (Version 1)
Quarter: 2023Q2

REPORT INFORMATION
  Report Type: Spontaneous
  Country: US (occurrence: US)
  Receive Date: 20230523
  Receipt Date: 20230523
  Transmission Date: 20230722
  Serious: No
  Sender: FDA-Public Use
  Company Number: US-BAYER-2023A069955

PATIENT
  Age: 71 Year
  Sex: Female

DRUGS (1)
  1. ASTEPRO [Suspect]
     Active Substance: AZELASTINE HYDROCHLORIDE
     Indication: Hypersensitivity
     Dosage: 2 SPRAYS IN EACH NOSTRIL TWICE A DAY FOR THREE DAYS THEN AND ONE SPRAY IN EACH NOSTRIL TWICE

REACTIONS (1)
  - Peripheral swelling [Recovering/Resolving]
